FAERS Safety Report 7785741-0 (Version None)
Quarter: 2011Q3

REPORT INFORMATION
  Report Type: 
  Country: None (occurrence: None)
  Receive Date: 20110929
  Receipt Date: 20110919
  Transmission Date: 20111222
  Serious: Yes (Other)
  Sender: FDA-Public Use
  Company Number: GB-SANOFI-AVENTIS-2011SA047444

PATIENT
  Age: 72 Year
  Sex: Male

DRUGS (3)
  1. MULTAQ [Suspect]
     Route: 048
     Dates: start: 20110601, end: 20110719
  2. IRBESARTAN [Concomitant]
     Indication: BLOOD PRESSURE INCREASED
     Route: 065
  3. BENDROFLUMETHIAZIDE [Concomitant]

REACTIONS (1)
  - BLOOD CREATININE INCREASED [None]
